FAERS Safety Report 9248330 (Version 2)
Quarter: 2015Q3

REPORT INFORMATION
  Report Type: Spontaneous
  Country: US (occurrence: US)
  Receive Date: 20130423
  Receipt Date: 20150806
  Transmission Date: 20151125
  Serious: Yes (Other)
  Sender: FDA-Public Use
  Company Number: US-BAYER-2013-049708

PATIENT
  Age: 23 Year
  Sex: Female
  Weight: 84 kg

DRUGS (1)
  1. MIRENA [Suspect]
     Active Substance: LEVONORGESTREL
     Indication: CONTRACEPTION
     Dosage: 20 MCG/24HR, CONT
     Route: 015
     Dates: start: 2010, end: 2010

REACTIONS (8)
  - Injury [None]
  - Anhedonia [None]
  - Psychogenic pain disorder [None]
  - Depression [None]
  - Emotional distress [None]
  - Anxiety [None]
  - Pain [None]
  - Device dislocation [None]

NARRATIVE: CASE EVENT DATE: 2010
